FAERS Safety Report 7463248-8 (Version None)
Quarter: 2011Q2

REPORT INFORMATION
  Report Type: 
  Country: None (occurrence: None)
  Receive Date: 20110506
  Receipt Date: 20110428
  Transmission Date: 20111010
  Serious: Yes (Other)
  Sender: FDA-Public Use
  Company Number: US-ROCHE-774225

PATIENT
  Sex: Female

DRUGS (3)
  1. BUSPAR [Concomitant]
     Indication: ANXIETY
  2. PEGASYS [Suspect]
     Indication: HEPATITIS C
     Route: 065
     Dates: start: 20110128
  3. RIBAVIRIN [Suspect]
     Indication: HEPATITIS C
     Dosage: IN DIVIDED DOSES
     Route: 065
     Dates: start: 20110128

REACTIONS (13)
  - APPENDICECTOMY [None]
  - NASAL DISCOMFORT [None]
  - DIZZINESS [None]
  - SUICIDAL IDEATION [None]
  - IRRITABILITY [None]
  - PSORIASIS [None]
  - DEPRESSION [None]
  - CHEST PAIN [None]
  - LOSS OF CONSCIOUSNESS [None]
  - VISION BLURRED [None]
  - HAEMATOLOGY TEST ABNORMAL [None]
  - HYPOAESTHESIA [None]
  - DIARRHOEA [None]
